FAERS Safety Report 8838226 (Version 1)
Quarter: 2012Q4

REPORT INFORMATION
  Report Type: 
  Country: JP (occurrence: JP)
  Receive Date: 20121012
  Receipt Date: 20121012
  Transmission Date: 20130627
  Serious: Yes (Other)
  Sender: FDA-Public Use
  Company Number: JP-BRISTOL-MYERS SQUIBB COMPANY-16491797

PATIENT
  Sex: Female

DRUGS (4)
  1. ABILIFY TABS [Suspect]
     Indication: BIPOLAR DISORDER
     Route: 048
     Dates: start: 201004
  2. ZOLOFT [Concomitant]
     Dosage: Tablet
  3. LIMAS [Concomitant]
     Dosage: Tablet
  4. SODIUM VALPROATE [Concomitant]
     Dosage: Tablet

REACTIONS (3)
  - Delusion [Unknown]
  - Pregnancy [Unknown]
  - Abnormal behaviour [Unknown]
